FAERS Safety Report 15318514 (Version 1)
Quarter: 2018Q3

REPORT INFORMATION
  Report Type: Spontaneous
  Country: US (occurrence: US)
  Receive Date: 20180817
  Receipt Date: 20180817
  Transmission Date: 20181010
  Serious: Yes (Death)
  Sender: FDA-Public Use
  Company Number: None

PATIENT
  Age: 6 Month
  Sex: Female

DRUGS (1)
  1. 5% LIDOCAINE [Suspect]
     Active Substance: LIDOCAINE

REACTIONS (4)
  - Toxicity to various agents [None]
  - Seizure [None]
  - Product use in unapproved indication [None]
  - Drug administered to patient of inappropriate age [None]

NARRATIVE: CASE EVENT DATE: 20171118
